FAERS Safety Report 7371728-9 (Version None)
Quarter: 2011Q1

REPORT INFORMATION
  Report Type: 
  Country: None (occurrence: None)
  Receive Date: 20110324
  Receipt Date: 20110315
  Transmission Date: 20110831
  Serious: Yes (Hospitalization, Other)
  Sender: FDA-Public Use
  Company Number: US-ROCHE-727314

PATIENT
  Sex: Female
  Weight: 51.3 kg

DRUGS (3)
  1. ACCUTANE [Suspect]
     Dosage: FREQUENCY: QID
     Route: 065
     Dates: start: 19940316, end: 20010301
  2. ACCUTANE [Suspect]
     Indication: ACNE
     Dosage: FREQUENCY: QID
     Route: 065
     Dates: start: 19870812, end: 19891001
  3. BIRTH CONTROL PILLS NOS [Concomitant]

REACTIONS (14)
  - INFLAMMATORY BOWEL DISEASE [None]
  - FISTULA [None]
  - HAEMORRHOIDS [None]
  - DRY SKIN [None]
  - IRON DEFICIENCY ANAEMIA [None]
  - MYALGIA [None]
  - DYSPEPSIA [None]
  - GASTROINTESTINAL INJURY [None]
  - ARTHRALGIA [None]
  - PERIRECTAL ABSCESS [None]
  - CROHN'S DISEASE [None]
  - COLITIS ULCERATIVE [None]
  - HYPERTROPHIC ANAL PAPILLA [None]
  - HEPATITIS ACUTE [None]
